FAERS Safety Report 12664023 (Version 2)
Quarter: 2017Q1

REPORT INFORMATION
  Report Type: Spontaneous
  Country: US (occurrence: US)
  Receive Date: 20160818
  Receipt Date: 20170215
  Transmission Date: 20170428
  Serious: No
  Sender: FDA-Public Use
  Company Number: US-RARE DISEASE THERAPEUTICS, INC.-1056473

PATIENT
  Age: 14 Year
  Sex: Male
  Weight: 36.29 kg

DRUGS (6)
  1. CYSTADANE [Suspect]
     Active Substance: BETAINE
     Indication: AMINO ACID LEVEL INCREASED
     Dates: start: 20140730
  2. LEUCOVORIN. [Concomitant]
     Active Substance: LEUCOVORIN
  3. VITAMIN B12 [Concomitant]
     Active Substance: CYANOCOBALAMIN
  4. CYTRA-2 [Concomitant]
     Active Substance: CITRIC ACID MONOHYDRATE\TRISODIUM CITRATE DIHYDRATE
  5. CARNITOR [Concomitant]
     Active Substance: LEVOCARNITINE
  6. MULTIVITAMIN [Concomitant]
     Active Substance: VITAMINS

REACTIONS (4)
  - Hypersensitivity [Recovered/Resolved]
  - Overdose [None]
  - Off label use [None]
  - Nasopharyngitis [Recovered/Resolved]

NARRATIVE: CASE EVENT DATE: 20140730
